FAERS Safety Report 7684421-X (Version None)
Quarter: 2011Q3

REPORT INFORMATION
  Report Type: 
  Country: None (occurrence: None)
  Receive Date: 20110816
  Receipt Date: 20110809
  Transmission Date: 20111222
  Serious: No
  Sender: FDA-Public Use
  Company Number: US-BIOGENIDEC-2010BI012284

PATIENT
  Sex: Male

DRUGS (1)
  1. TYSABRI [Suspect]
     Indication: MULTIPLE SCLEROSIS
     Route: 042
     Dates: start: 20100225

REACTIONS (7)
  - PARAESTHESIA [None]
  - NEPHROLITHIASIS [None]
  - NEURALGIA [None]
  - RENAL PAIN [None]
  - GROIN PAIN [None]
  - VIBRATORY SENSE INCREASED [None]
  - MUSCLE SPASTICITY [None]
